FAERS Safety Report 10901760 (Version 3)
Quarter: 2015Q2

REPORT INFORMATION
  Report Type: Report from Study
  Country: US (occurrence: US)
  Receive Date: 20150310
  Receipt Date: 20150512
  Transmission Date: 20150821
  Serious: Yes (Hospitalization, Other)
  Sender: FDA-Public Use
  Company Number: US-SA-2014SA176411

PATIENT
  Age: 71 Year
  Sex: Female
  Weight: 68.03 kg

DRUGS (16)
  1. LEVOTHYROXINE [Concomitant]
     Active Substance: LEVOTHYROXINE
  2. AMPYRA [Concomitant]
     Active Substance: DALFAMPRIDINE
     Dates: start: 2010
  3. VITAMIN D [Concomitant]
     Active Substance: CHOLECALCIFEROL
     Dosage: DOSE:1000 UNIT(S)
  4. DIGITEK [Concomitant]
     Active Substance: DIGOXIN
  5. AUBAGIO [Suspect]
     Active Substance: TERIFLUNOMIDE
     Indication: MULTIPLE SCLEROSIS
     Route: 048
     Dates: start: 201501, end: 201502
  6. MAGNESIUM [Concomitant]
     Active Substance: MAGNESIUM
     Dosage: DOSE:1000 UNIT(S)
  7. ESTRACE [Concomitant]
     Active Substance: ESTRADIOL
     Dosage: VIVELLE-DOT
  8. HYDROCHLOROTHIAZIDE. [Concomitant]
     Active Substance: HYDROCHLOROTHIAZIDE
  9. DITROPAN [Concomitant]
     Active Substance: OXYBUTYNIN CHLORIDE
  10. TRIAMCINOLONE [Concomitant]
     Active Substance: TRIAMCINOLONE
  11. ALBUTEROL. [Concomitant]
     Active Substance: ALBUTEROL
  12. AUBAGIO [Suspect]
     Active Substance: TERIFLUNOMIDE
     Indication: MULTIPLE SCLEROSIS
     Route: 048
     Dates: start: 201412, end: 20150115
  13. NASACORT [Concomitant]
     Active Substance: TRIAMCINOLONE ACETONIDE
  14. AUBAGIO [Suspect]
     Active Substance: TERIFLUNOMIDE
     Indication: MULTIPLE SCLEROSIS
     Route: 048
     Dates: start: 20141201
  15. IMODIUM [Concomitant]
     Active Substance: LOPERAMIDE HYDROCHLORIDE
  16. LISINOPRIL. [Concomitant]
     Active Substance: LISINOPRIL

REACTIONS (17)
  - Dermatitis [Unknown]
  - Swelling [Unknown]
  - Pain [Recovering/Resolving]
  - Diarrhoea [Unknown]
  - White blood cell disorder [Unknown]
  - Lip swelling [Unknown]
  - Fear [Unknown]
  - Arthralgia [Unknown]
  - Pharyngeal oedema [Unknown]
  - Flatulence [Recovering/Resolving]
  - Chills [Unknown]
  - Unevaluable event [Unknown]
  - Drug dose omission [Unknown]
  - Dysphagia [Unknown]
  - Cholecystectomy [Unknown]
  - Myalgia [Recovering/Resolving]
  - Mouth swelling [Unknown]

NARRATIVE: CASE EVENT DATE: 201412
